FAERS Safety Report 11273527 (Version 1)
Quarter: 2015Q3

REPORT INFORMATION
  Report Type: Spontaneous
  Country: US (occurrence: US)
  Receive Date: 20150715
  Receipt Date: 20150715
  Transmission Date: 20151125
  Serious: No
  Sender: FDA-Public Use
  Company Number: US-HORIZON-PEN-0113-2015

PATIENT
  Sex: Male

DRUGS (2)
  1. ANDROGEL 1.62% [Concomitant]
     Active Substance: TESTOSTERONE
     Indication: MUSCULOSKELETAL DISCOMFORT
  2. PENNSAID [Suspect]
     Active Substance: DICLOFENAC SODIUM
     Indication: OSTEOARTHRITIS
     Route: 061

REACTIONS (2)
  - Product quality issue [Unknown]
  - Off label use [Unknown]
